FAERS Safety Report 8598650-4 (Version None)
Quarter: 2012Q3

REPORT INFORMATION
  Report Type: 
  Country: None (occurrence: None)
  Receive Date: 20120816
  Receipt Date: 20120809
  Transmission Date: 20120928
  Serious: Yes (Disabling, Other)
  Sender: FDA-Public Use
  Company Number: AU-ROCHE-1100496

PATIENT
  Sex: Male

DRUGS (2)
  1. VICTRELIS [Suspect]
     Indication: HEPATITIS C
     Dates: start: 20120508, end: 20120720
  2. PEGASYS [Suspect]
     Indication: HEPATITIS C
     Dates: start: 20120410, end: 20120720

REACTIONS (3)
  - DRUG INEFFECTIVE [None]
  - DEAFNESS UNILATERAL [None]
  - DIZZINESS [None]
